FAERS Safety Report 23064036 (Version 2)
Quarter: 2024Q1

REPORT INFORMATION
  Report Type: Spontaneous
  Country: US (occurrence: US)
  Receive Date: 20231013
  Receipt Date: 20240125
  Transmission Date: 20240410
  Serious: No
  Sender: FDA-Public Use
  Company Number: US-PPDUS-2023ST003575

PATIENT
  Age: 70 Year
  Sex: Female

DRUGS (1)
  1. ORSERDU [Suspect]
     Active Substance: ELACESTRANT
     Indication: Product used for unknown indication
     Dosage: 345 MG, ONCE A DAY
     Route: 048
     Dates: start: 20230316

REACTIONS (1)
  - Positron emission tomogram abnormal [Not Recovered/Not Resolved]

NARRATIVE: CASE EVENT DATE: 20230920
